FAERS Safety Report 5614236-5 (Version None)
Quarter: 2008Q1

REPORT INFORMATION
  Report Type: 
  Country: None (occurrence: None)
  Receive Date: 20080205
  Receipt Date: 20080128
  Transmission Date: 20080703
  Serious: Yes (Hospitalization)
  Sender: FDA-Public Use
  Company Number: ES-PFIZER INC-2008008174

PATIENT
  Age: 89 Year
  Sex: Male

DRUGS (5)
  1. CARDURA [Suspect]
     Indication: HYPERTENSION
     Route: 048
  2. AREMIS [Concomitant]
     Route: 048
  3. DISGREN [Concomitant]
  4. LEXATIN [Concomitant]
     Route: 048
  5. PROSCAR [Concomitant]
     Route: 048

REACTIONS (1)
  - CEREBROVASCULAR ACCIDENT [None]
